FAERS Safety Report 23625651 (Version 2)
Quarter: 2024Q1

REPORT INFORMATION
  Report Type: Spontaneous
  Country: US (occurrence: US)
  Receive Date: 20240313
  Receipt Date: 20240322
  Transmission Date: 20240409
  Serious: Yes (Other)
  Sender: FDA-Public Use
  Company Number: US-LUPIN PHARMACEUTICALS INC.-2024-01984

PATIENT

DRUGS (2)
  1. LISINOPRIL [Suspect]
     Active Substance: LISINOPRIL
     Indication: Hypertension
     Dosage: 5 MG, QD
     Route: 048
     Dates: start: 20240226
  2. LISINOPRIL [Suspect]
     Active Substance: LISINOPRIL
     Dosage: 2.5 MG, QD
     Route: 048

REACTIONS (3)
  - Seizure [Recovered/Resolved]
  - Disease recurrence [Recovered/Resolved]
  - Cough [Recovered/Resolved]

NARRATIVE: CASE EVENT DATE: 20240226
